FAERS Safety Report 14208478 (Version 1)
Quarter: 2017Q4

REPORT INFORMATION
  Report Type: Spontaneous
  Country: US (occurrence: None)
  Receive Date: 20171120
  Receipt Date: 20171120
  Transmission Date: 20180321
  Serious: No
  Sender: FDA-Public Use
  Company Number: None

PATIENT
  Age: 74 Year
  Sex: Male

DRUGS (1)
  1. TASIGNA [Suspect]
     Active Substance: NILOTINIB
     Indication: CHRONIC MYELOID LEUKAEMIA
     Dosage: 150MG 2 BID PO
     Route: 048
     Dates: start: 20150804

REACTIONS (2)
  - Nausea [None]
  - Pruritus [None]

NARRATIVE: CASE EVENT DATE: 20171101
